FAERS Safety Report 8117342-9 (Version None)
Quarter: 2012Q1

REPORT INFORMATION
  Report Type: 
  Country: None (occurrence: None)
  Receive Date: 20120206
  Receipt Date: 20120111
  Transmission Date: 20120608
  Serious: Yes (Other)
  Sender: FDA-Public Use
  Company Number: PHEH2012US001140

PATIENT
  Sex: Female

DRUGS (14)
  1. LIPITOR [Concomitant]
     Dosage: 20 MG, UNK
  2. DIOVAN [Suspect]
     Dosage: 160 MG, UNK
  3. ACTONEL [Concomitant]
  4. NEXIUM [Concomitant]
     Dosage: 40 MG, UNK
  5. MAG-OX [Concomitant]
     Dosage: 400 MG, UNK
  6. CALAN - SLOW RELEASE [Concomitant]
  7. LYRICA [Concomitant]
     Dosage: 50 MG, UNK
  8. BENADRYL ^ACHE^ [Concomitant]
  9. ANTACID ^GNC^ [Concomitant]
  10. FLOMAX [Concomitant]
  11. SPIRONOLACTONE [Concomitant]
     Dosage: 25 MG, UNK
  12. GLUCOTROL XL [Concomitant]
     Dosage: 10 MG, UNK
  13. FIBER [Concomitant]
  14. VIVACTIL [Concomitant]
     Dosage: 10 MG, UNK

REACTIONS (3)
  - OSTEOMYELITIS [None]
  - EAR PAIN [None]
  - FOOT FRACTURE [None]
